FAERS Safety Report 7443310-6 (Version None)
Quarter: 2011Q2

REPORT INFORMATION
  Report Type: 
  Country: None (occurrence: None)
  Receive Date: 20110428
  Receipt Date: 20110427
  Transmission Date: 20111010
  Serious: Yes (Other)
  Sender: FDA-Public Use
  Company Number: JP-PFIZER INC-2011091146

PATIENT
  Age: 71 Year
  Sex: Female

DRUGS (4)
  1. ARTANE [Suspect]
     Route: 048
  2. PRAMIPEXOLE DIHYDROCHLORIDE [Suspect]
  3. RIVOTRIL [Suspect]
  4. EC DOPARL [Suspect]

REACTIONS (1)
  - EYELID PTOSIS [None]
